FAERS Safety Report 17483410 (Version 4)
Quarter: 2021Q2

REPORT INFORMATION
  Report Type: Spontaneous
  Country: US (occurrence: US)
  Receive Date: 20200302
  Receipt Date: 20210430
  Transmission Date: 20210716
  Serious: No
  Sender: FDA-Public Use
  Company Number: US-VERTEX PHARMACEUTICALS-2020-003640

PATIENT
  Age: 20 Year
  Sex: Female

DRUGS (1)
  1. TRIKAFTA [Suspect]
     Active Substance: ELEXACAFTOR\IVACAFTOR\TEZACAFTOR
     Indication: CYSTIC FIBROSIS
     Dosage: (200MG ELEXACAFTOR/100MG TEZACAFTOR/150MG IVACAFTOR) AM; (150MG IVACAFTOR) PM
     Route: 048
     Dates: start: 20200131

REACTIONS (4)
  - Nephrolithiasis [Unknown]
  - Abdominal pain upper [Unknown]
  - Rash [Unknown]
  - Blood urine present [Recovered/Resolved]

NARRATIVE: CASE EVENT DATE: 2020
